FAERS Safety Report 4689183-6 (Version None)
Quarter: 2005Q2

REPORT INFORMATION
  Report Type: 
  Country: None (occurrence: None)
  Receive Date: 20050608
  Receipt Date: 20050225
  Transmission Date: 20051028
  Serious: No
  Sender: FDA-Public Use
  Company Number: 2005-BP-03147BP

PATIENT
  Age: 87 Year
  Sex: Male

DRUGS (5)
  1. SPIRIVA [Suspect]
     Indication: CHRONIC OBSTRUCTIVE PULMONARY DISEASE
     Dosage: 18 MCG (18 MCG, OD), IH
     Route: 055
     Dates: start: 20040806
  2. SPIRIVA [Suspect]
  3. VENTOLIN [Concomitant]
  4. ALBUTEROL [Concomitant]
  5. ADVAIR DISKUS (SERETIDE MITE) [Concomitant]

REACTIONS (1)
  - DRUG INEFFECTIVE [None]
